FAERS Safety Report 6285047-5 (Version None)
Quarter: 2009Q3

REPORT INFORMATION
  Report Type: 
  Country: None (occurrence: None)
  Receive Date: 20090727
  Receipt Date: 20090629
  Transmission Date: 20100115
  Serious: No
  Sender: FDA-Public Use
  Company Number: US-TYCO HEALTHCARE/MALLINCKRODT-T200901310

PATIENT
  Age: 42 Year
  Sex: Female
  Weight: 63.492 kg

DRUGS (6)
  1. OXYCODONE HCL EXTENDED-RELEASE [Suspect]
     Indication: MUSCULOSKELETAL DISCOMFORT
     Dosage: UNK, Q6H PRN
     Route: 048
     Dates: end: 20090601
  2. OXYCODONE HCL EXTENDED-RELEASE [Suspect]
     Indication: BACK PAIN
  3. OXYCODONE HCL [Concomitant]
     Indication: MUSCULOSKELETAL DISCOMFORT
  4. LYRICA [Concomitant]
     Indication: PAIN
     Dosage: 2 IN AM, 2 IN PM
     Route: 048
  5. SOMA [Concomitant]
     Indication: PAIN
     Dosage: 325 MG, 2-3 TIMES/DAY
     Route: 048
  6. DIAZEPAM [Concomitant]
     Indication: MUSCLE SPASMS
     Dosage: 5 MG, BID
     Route: 048

REACTIONS (3)
  - DRUG INEFFECTIVE [None]
  - INFLUENZA LIKE ILLNESS [None]
  - WITHDRAWAL SYNDROME [None]
